FAERS Safety Report 12790961 (Version 1)
Quarter: 2016Q3

REPORT INFORMATION
  Report Type: Spontaneous
  Country: US (occurrence: US)
  Receive Date: 20160929
  Receipt Date: 20160929
  Transmission Date: 20161109
  Serious: No
  Sender: FDA-Public Use
  Company Number: US-PFIZER INC-2016449387

PATIENT
  Age: 78 Year
  Sex: Male

DRUGS (1)
  1. CALAN SR [Suspect]
     Active Substance: VERAPAMIL HYDROCHLORIDE
     Indication: HYPERTENSION
     Dosage: 120 MG, 2X/DAY
     Route: 048

REACTIONS (3)
  - Reading disorder [Unknown]
  - Speech disorder [Unknown]
  - Blood pressure inadequately controlled [Unknown]
